FAERS Safety Report 13878319 (Version 1)
Quarter: 2017Q3

REPORT INFORMATION
  Report Type: Spontaneous
  Country: US (occurrence: US)
  Receive Date: 20170817
  Receipt Date: 20170817
  Transmission Date: 20171127
  Serious: No
  Sender: FDA-Public Use
  Company Number: US-ROCHE-1073599

PATIENT
  Sex: Male

DRUGS (2)
  1. TEGOBUVIR [Concomitant]
     Active Substance: TEGOBUVIR
     Route: 065
     Dates: start: 20110916
  2. RIBAVIRIN. [Suspect]
     Active Substance: RIBAVIRIN
     Indication: HEPATITIS C
     Route: 048
     Dates: start: 20110916

REACTIONS (1)
  - Viral load increased [Unknown]
